FAERS Safety Report 6445715-9 (Version None)
Quarter: 2009Q4

REPORT INFORMATION
  Report Type: 
  Country: None (occurrence: None)
  Receive Date: 20091118
  Receipt Date: 20091118
  Transmission Date: 20100525
  Serious: No
  Sender: FDA-Public Use
  Company Number: None

PATIENT
  Age: 55 Year
  Sex: Female
  Weight: 90.7194 kg

DRUGS (1)
  1. GEMFIBROZIL [Suspect]
     Indication: BLOOD TRIGLYCERIDES INCREASED
     Dosage: 1 600MG TAB TWICE A DAY
     Dates: start: 20080601, end: 20091101

REACTIONS (1)
  - ALOPECIA [None]
